FAERS Safety Report 9383464 (Version 1)
Quarter: 2013Q3

REPORT INFORMATION
  Report Type: Spontaneous
  Country: US (occurrence: US)
  Receive Date: 20130704
  Receipt Date: 20130704
  Transmission Date: 20140515
  Serious: Yes (Other)
  Sender: FDA-Public Use
  Company Number: US-PFIZER INC-2013197155

PATIENT
  Age: 45 Year
  Sex: Female

DRUGS (1)
  1. GEMFIBROZIL [Suspect]
     Dosage: UNK
     Dates: end: 20080204

REACTIONS (3)
  - Drug hypersensitivity [Unknown]
  - Suicidal ideation [Unknown]
  - Pain [Unknown]
